FAERS Safety Report 9429294 (Version 2)
Quarter: 2013Q3

REPORT INFORMATION
  Report Type: Spontaneous
  Country: US (occurrence: US)
  Receive Date: 20130730
  Receipt Date: 20130917
  Transmission Date: 20140515
  Serious: Yes (Hospitalization)
  Sender: FDA-Public Use
  Company Number: US-ALLERGAN-1311126US

PATIENT
  Age: 68 Year
  Sex: Female

DRUGS (3)
  1. REFRESH P.M. [Suspect]
     Indication: DRY EYE
     Dosage: EACH EVENING
     Route: 047
     Dates: start: 201301
  2. REFRESH P.M. [Suspect]
     Indication: EYE PRURITUS
  3. PATANOL [Concomitant]
     Indication: PRODUCT USED FOR UNKNOWN INDICATION
     Dosage: UNK, DURING THE DAY
     Route: 047

REACTIONS (2)
  - Hospitalisation [Unknown]
  - Wrong technique in drug usage process [Unknown]
